FAERS Safety Report 8243382-5 (Version None)
Quarter: 2012Q1

REPORT INFORMATION
  Report Type: 
  Country: None (occurrence: None)
  Receive Date: 20120329
  Receipt Date: 20120326
  Transmission Date: 20120608
  Serious: No
  Sender: FDA-Public Use
  Company Number: US-PFIZER INC-2012078017

PATIENT
  Sex: Female

DRUGS (2)
  1. CELEBREX [Suspect]
     Dosage: 200 MG, Q AM
     Route: 048
  2. LYRICA [Suspect]
     Dosage: 75 MG, (2 TABS Q AM)
     Route: 048

REACTIONS (1)
  - PAIN [None]
